FAERS Safety Report 13868722 (Version 2)
Quarter: 2017Q3

REPORT INFORMATION
  Report Type: Spontaneous
  Country: US (occurrence: US)
  Receive Date: 20170815
  Receipt Date: 20170829
  Transmission Date: 20171127
  Serious: No
  Sender: FDA-Public Use
  Company Number: US-PFIZER INC-2017349601

PATIENT
  Age: 70 Year
  Sex: Female
  Weight: 52 kg

DRUGS (3)
  1. BABY ASPIRIN [Concomitant]
     Active Substance: ASPIRIN
     Dosage: UNK
  2. SUTENT [Suspect]
     Active Substance: SUNITINIB MALATE
     Indication: GASTROINTESTINAL STROMAL TUMOUR
     Dosage: 25 MG, 1X/DAY, CONTINUOUS (DAILY)
     Dates: start: 201707
  3. TENORMIN [Concomitant]
     Active Substance: ATENOLOL
     Dosage: UNK

REACTIONS (2)
  - Weight decreased [Unknown]
  - Constipation [Unknown]

NARRATIVE: CASE EVENT DATE: 2017
